FAERS Safety Report 19117451 (Version 2)
Quarter: 2021Q3

REPORT INFORMATION
  Report Type: Spontaneous
  Country: JP (occurrence: JP)
  Receive Date: 20210409
  Receipt Date: 20210914
  Transmission Date: 20211014
  Serious: Yes (Hospitalization)
  Sender: FDA-Public Use
  Company Number: JP-ELI_LILLY_AND_COMPANY-JP202104002229

PATIENT
  Age: 3 Year
  Sex: Male
  Weight: 18.7 kg

DRUGS (25)
  1. ADCIRCA [Suspect]
     Active Substance: TADALAFIL
     Indication: PULMONARY ARTERIAL HYPERTENSION
     Dosage: 17 MG, DAILY
     Route: 048
  2. FUROSEMIDE. [Concomitant]
     Active Substance: FUROSEMIDE
     Dosage: 33 MG, UNKNOWN
  3. ASPIRINA BAYER [Concomitant]
     Active Substance: ASPIRIN
     Indication: PROPHYLAXIS
     Dosage: 55 MG, UNKNOWN
  4. UPTRAVI [Suspect]
     Active Substance: SELEXIPAG
     Indication: PULMONARY ARTERIAL HYPERTENSION
     Dosage: 0.07 MG, DAILY
     Route: 048
     Dates: start: 20170718, end: 20170814
  5. UPTRAVI [Suspect]
     Active Substance: SELEXIPAG
     Dosage: 0.85 MG, DAILY
     Route: 048
     Dates: start: 20190521, end: 20190715
  6. UPTRAVI [Suspect]
     Active Substance: SELEXIPAG
     Dosage: 0.9 MG, DAILY
     Route: 048
     Dates: start: 20190716, end: 20190918
  7. UPTRAVI [Suspect]
     Active Substance: SELEXIPAG
     Dosage: 1 MG, DAILY
     Route: 048
     Dates: start: 20190917, end: 20191022
  8. UPTRAVI [Suspect]
     Active Substance: SELEXIPAG
     Dosage: 0.42 MG, DAILY
     Route: 048
     Dates: start: 20171219, end: 20180115
  9. UPTRAVI [Suspect]
     Active Substance: SELEXIPAG
     Dosage: 0.56 MG, DAILY
     Route: 048
     Dates: start: 20180213, end: 20180319
  10. UPTRAVI [Suspect]
     Active Substance: SELEXIPAG
     Dosage: 0.8 MG, DAILY
     Route: 048
     Dates: start: 20190326, end: 20190520
  11. SPIRONOLACTONE. [Concomitant]
     Active Substance: SPIRONOLACTONE
     Dosage: 33 MG, UNKNOWN
  12. OPSUMIT [Suspect]
     Active Substance: MACITENTAN
     Indication: PULMONARY ARTERIAL HYPERTENSION
     Dosage: 2.5 MG, DAILY
     Route: 048
  13. UPTRAVI [Suspect]
     Active Substance: SELEXIPAG
     Dosage: 0.49 MG, DAILY
     Route: 048
     Dates: start: 20180116, end: 20180212
  14. UPTRAVI [Suspect]
     Active Substance: SELEXIPAG
     Dosage: 0.6 MG, DAILY
     Route: 048
     Dates: start: 20180320, end: 20181026
  15. KIPRES [Concomitant]
     Active Substance: MONTELUKAST SODIUM
     Indication: ASTHMA
     Dosage: 4 MG, UNKNOWN
  16. UPTRAVI [Suspect]
     Active Substance: SELEXIPAG
     Dosage: 0.14 MG, DAILY
     Route: 048
     Dates: start: 20170815, end: 20170911
  17. UPTRAVI [Suspect]
     Active Substance: SELEXIPAG
     Dosage: 0.21 MG, DAILY
     Route: 048
     Dates: start: 20170912, end: 20171009
  18. UPTRAVI [Suspect]
     Active Substance: SELEXIPAG
     Dosage: 0.7 MG, DAILY
     Route: 048
     Dates: start: 20181120, end: 20181216
  19. UPTRAVI [Suspect]
     Active Substance: SELEXIPAG
     Dosage: 0.75 MG, DAILY
     Route: 048
     Dates: start: 20181217, end: 20190325
  20. WARFARIN POTASSIUM [Concomitant]
     Active Substance: WARFARIN POTASSIUM
     Indication: PROPHYLAXIS
     Dosage: 1.5 MG, UNKNOWN
  21. UPTRAVI [Suspect]
     Active Substance: SELEXIPAG
     Dosage: 0.28 MG, DAILY
     Route: 048
     Dates: start: 20171010, end: 20171120
  22. UPTRAVI [Suspect]
     Active Substance: SELEXIPAG
     Dosage: 0.35 MG, DAILY
     Route: 048
     Dates: start: 20171121, end: 20171218
  23. UPTRAVI [Suspect]
     Active Substance: SELEXIPAG
     Dosage: 0.9 MG, DAILY
     Route: 048
     Dates: start: 20191023
  24. ONON [Concomitant]
     Active Substance: PRANLUKAST
     Indication: ASTHMA
     Dosage: 120 MG
     Dates: start: 20180320
  25. UPTRAVI [Suspect]
     Active Substance: SELEXIPAG
     Dosage: 0.64 MG, DAILY
     Route: 048
     Dates: start: 20181027, end: 20181119

REACTIONS (11)
  - Blood thyroid stimulating hormone decreased [Recovered/Resolved]
  - Diarrhoea [Recovered/Resolved]
  - Headache [Recovered/Resolved]
  - Upper respiratory tract inflammation [Recovered/Resolved]
  - Off label use [Unknown]
  - Upper respiratory tract inflammation [Recovered/Resolved]
  - Myalgia [Recovered/Resolved]
  - Brain abscess [Recovered/Resolved]
  - Headache [Recovered/Resolved]
  - Pain in extremity [Recovered/Resolved]
  - Headache [Recovered/Resolved]

NARRATIVE: CASE EVENT DATE: 20170801
